FAERS Safety Report 9940332 (Version 1)
Quarter: 2014Q1

REPORT INFORMATION
  Report Type: Report from Study
  Country: CA (occurrence: CA)
  Receive Date: 20140303
  Receipt Date: 20140303
  Transmission Date: 20141002
  Serious: Yes (Other)
  Sender: FDA-Public Use
  Company Number: CA-ABBVIE-14P-028-1205800-00

PATIENT
  Sex: Female

DRUGS (1)
  1. HUMIRA [Suspect]
     Indication: PSORIASIS
     Dosage: LATEST DOSE: 19-FEB-2014
     Route: 058
     Dates: start: 20111221

REACTIONS (2)
  - Carpal tunnel syndrome [Unknown]
  - Psoriasis [Not Recovered/Not Resolved]
